FAERS Safety Report 23944703 (Version 1)
Quarter: 2024Q2

REPORT INFORMATION
  Report Type: Spontaneous
  Country: DE (occurrence: DE)
  Receive Date: 20240606
  Receipt Date: 20240606
  Transmission Date: 20240715
  Serious: Yes (Hospitalization)
  Sender: FDA-Public Use
  Company Number: DE-SAMSUNG BIOEPIS-SB-2024-17096

PATIENT
  Age: 59 Year
  Sex: Male
  Weight: 56 kg

DRUGS (6)
  1. TRASTUZUMAB [Suspect]
     Active Substance: TRASTUZUMAB
     Indication: Oesophageal adenocarcinoma
     Dosage: D1:8 MG/KG, IV; 6 MG/KG, IV D22/D43 PRE- AND POST-OP, AFTERWARDS 6 MG/KG IV D1 Q3W
     Route: 042
     Dates: start: 20231011, end: 20240411
  2. PEMBROLIZUMAB [Suspect]
     Active Substance: PEMBROLIZUMAB
     Indication: Oesophageal adenocarcinoma
     Route: 042
     Dates: start: 20231011, end: 20240320
  3. OXALIPLATIN [Suspect]
     Active Substance: OXALIPLATIN
     Indication: Oesophageal adenocarcinoma
     Dosage: 85 MG/M2, IV D1/D15/D29 AND D43 PRE- AND POST OP
     Route: 042
     Dates: start: 20231011, end: 20231207
  4. LEUCOVORIN [Suspect]
     Active Substance: LEUCOVORIN\LEUCOVORIN CALCIUM
     Indication: Oesophageal adenocarcinoma
     Dosage: 200 MG/M2, IV, D1/D15/D29 AND D43 PRE AND POST OP
     Route: 042
     Dates: start: 20231011, end: 20231115
  5. FLUOROURACIL [Suspect]
     Active Substance: FLUOROURACIL
     Indication: Oesophageal adenocarcinoma
     Dosage: 2500 MG/M2, IV, D1/D15/D29 AND D43 PRE AND POST OP
     Route: 042
     Dates: start: 20231011, end: 20231115
  6. DOCETAXEL [Suspect]
     Active Substance: DOCETAXEL\DOCETAXEL ANHYDROUS
     Indication: Oesophageal adenocarcinoma
     Dosage: 50 MG/M2, IV, D1/D15/D29 AND D43 PRE AND POST OP
     Route: 042
     Dates: start: 20231011, end: 20231207

REACTIONS (2)
  - Colitis [Not Recovered/Not Resolved]
  - Off label use [Unknown]

NARRATIVE: CASE EVENT DATE: 20240422
